FAERS Safety Report 5164120-9 (Version None)
Quarter: 2006Q4

REPORT INFORMATION
  Report Type: 
  Country: None (occurrence: None)
  Receive Date: 20061124
  Receipt Date: 20061110
  Transmission Date: 20070319
  Serious: Yes (Hospitalization, Other)
  Sender: FDA-Public Use
  Company Number: US-2006-035020

PATIENT
  Age: 50 Year
  Sex: Female

DRUGS (1)
  1. BETASERON [Suspect]
     Indication: SECONDARY PROGRESSIVE MULTIPLE SCLEROSIS
     Dosage: 8 MIU, EVERY 2D, SUBCUTANEOUS
     Route: 058
     Dates: start: 20030430

REACTIONS (4)
  - CELLULITIS [None]
  - CONDITION AGGRAVATED [None]
  - LUNG NEOPLASM MALIGNANT [None]
  - SECONDARY PROGRESSIVE MULTIPLE SCLEROSIS [None]
